FAERS Safety Report 6664480-3 (Version None)
Quarter: 2010Q2

REPORT INFORMATION
  Report Type: 
  Country: None (occurrence: None)
  Receive Date: 20100401
  Receipt Date: 20100322
  Transmission Date: 20101027
  Serious: Yes (Other)
  Sender: FDA-Public Use
  Company Number: GB-GILEAD-2009-0026019

PATIENT
  Sex: Male
  Weight: 98 kg

DRUGS (5)
  1. ATRIPLA [Suspect]
     Indication: HIV INFECTION
  2. ATAZANAVIR [Concomitant]
     Indication: HIV INFECTION
  3. ETRAVIRINE [Concomitant]
     Indication: HIV INFECTION
  4. DARUNAVIR [Concomitant]
     Indication: HIV INFECTION
  5. RITONAVIR [Concomitant]
     Indication: HIV INFECTION

REACTIONS (3)
  - ABNORMAL DREAMS [None]
  - DIARRHOEA [None]
  - MYOCARDIAL INFARCTION [None]
